FAERS Safety Report 9914539 (Version 5)
Quarter: 2015Q3

REPORT INFORMATION
  Report Type: Report from Study
  Country: ES (occurrence: ES)
  Receive Date: 20140220
  Receipt Date: 20150914
  Transmission Date: 20151125
  Serious: Yes (Death)
  Sender: FDA-Public Use
  Company Number: ES-EXELIXIS-XL18414004015

PATIENT
  Age: 61 Year
  Sex: Male
  Weight: 87 kg

DRUGS (7)
  1. TRAMADOL. [Concomitant]
     Active Substance: TRAMADOL
  2. OMEPRAZOL [Concomitant]
     Active Substance: OMEPRAZOLE
  3. ORFIDAL [Concomitant]
     Active Substance: LORAZEPAM
  4. PREDNISONA [Concomitant]
     Active Substance: PREDNISONE
  5. XL184 [Suspect]
     Active Substance: CABOZANTINIB
     Indication: RENAL CELL CARCINOMA
     Dosage: 60 MG, QD
     Route: 048
     Dates: start: 20131113, end: 20140213
  6. RAMIPRIL. [Concomitant]
     Active Substance: RAMIPRIL
  7. IBUPROFENO [Concomitant]
     Active Substance: IBUPROFEN

REACTIONS (1)
  - Death [Fatal]

NARRATIVE: CASE EVENT DATE: 20140214
